FAERS Safety Report 7413013-2 (Version None)
Quarter: 2011Q2

REPORT INFORMATION
  Report Type: 
  Country: None (occurrence: None)
  Receive Date: 20110408
  Receipt Date: 20110408
  Transmission Date: 20111010
  Serious: Yes (Life-Threatening)
  Sender: FDA-Public Use
  Company Number: None

PATIENT
  Age: 51 Year
  Sex: Male
  Weight: 101.6057 kg

DRUGS (1)
  1. NIASPAN [Suspect]
     Dosage: 500 ONE TIME DAILY
     Dates: start: 20110325, end: 20110405

REACTIONS (6)
  - MUSCLE SPASMS [None]
  - IMPAIRED WORK ABILITY [None]
  - DIZZINESS [None]
  - MALAISE [None]
  - BLOOD PRESSURE DIASTOLIC DECREASED [None]
  - MYALGIA [None]
